FAERS Safety Report 4455008-7 (Version None)
Quarter: 2004Q3

REPORT INFORMATION
  Report Type: 
  Country: None (occurrence: None)
  Receive Date: 20040824
  Receipt Date: 20040621
  Transmission Date: 20050211
  Serious: No
  Sender: FDA-Public Use
  Company Number: SU-2004-002470

PATIENT
  Age: 62 Year
  Sex: Female
  Weight: 60.3284 kg

DRUGS (6)
  1. BENICAR [Suspect]
     Indication: HYPERTENSION
     Dosage: 20 MG QD PO
     Route: 048
     Dates: start: 20030701
  2. BENICAR [Suspect]
     Indication: HYPERTENSION
     Dosage: 20 MG QD PO
     Route: 048
     Dates: start: 20040607
  3. SYNTHROID [Concomitant]
  4. EVISTA [Concomitant]
  5. SINGULAIR [Concomitant]
  6. ALLEGRA [Concomitant]

REACTIONS (1)
  - BLOOD PRESSURE INCREASED [None]
